FAERS Safety Report 25428173 (Version 1)
Quarter: 2025Q2

REPORT INFORMATION
  Report Type: Report from Study
  Country: CA (occurrence: CA)
  Receive Date: 20250612
  Receipt Date: 20250612
  Transmission Date: 20250716
  Serious: Yes (Other)
  Sender: LEO PHARM
  Company Number: CA-LEO Pharma-379847

PATIENT
  Age: 51 Year
  Sex: Female

DRUGS (2)
  1. ADBRY [Suspect]
     Active Substance: TRALOKINUMAB-LDRM
     Indication: Dermatitis atopic
     Route: 058
     Dates: start: 20250513, end: 20250603
  2. ADBRY [Suspect]
     Active Substance: TRALOKINUMAB-LDRM
     Indication: Dermatitis atopic
     Route: 058
     Dates: start: 20250513, end: 20250603

REACTIONS (6)
  - Fatigue [Recovered/Resolved]
  - Asthenopia [Recovered/Resolved]
  - Eye irritation [Unknown]
  - Eye irritation [Recovered/Resolved]
  - Ocular hyperaemia [Not Recovered/Not Resolved]
  - Photophobia [Unknown]

NARRATIVE: CASE EVENT DATE: 20250501
